FAERS Safety Report 16242900 (Version 1)
Quarter: 2019Q2

REPORT INFORMATION
  Report Type: Spontaneous
  Country: US (occurrence: US)
  Receive Date: 20190322
  Receipt Date: 20190322
  Transmission Date: 20190711
  Serious: Yes (Other)
  Sender: FDA-Public Use
  Company Number: None

PATIENT
  Age: 59 Year
  Sex: Male
  Weight: 120.66 kg

DRUGS (10)
  1. AMIODARONE [Suspect]
     Active Substance: AMIODARONE
     Indication: CARDIOVERSION
     Dates: start: 20120225, end: 2012
  2. GLYPRIDE [Concomitant]
     Active Substance: GLIMEPIRIDE
  3. ZANTAC [Concomitant]
     Active Substance: RANITIDINE HYDROCHLORIDE
  4. LASIX [Concomitant]
     Active Substance: FUROSEMIDE
  5. AMIODARONE [Suspect]
     Active Substance: AMIODARONE
     Indication: CARDIAC PACEMAKER INSERTION
     Dates: start: 20120225, end: 2012
  6. SOTALOL. [Concomitant]
     Active Substance: SOTALOL
  7. TYLENOL WITH CODEINE [Concomitant]
     Active Substance: ACETAMINOPHEN\CODEINE PHOSPHATE
  8. CITRICEL [Concomitant]
  9. AMIODARONE [Suspect]
     Active Substance: AMIODARONE
     Indication: ARRHYTHMIA
     Dates: start: 20120225, end: 2012
  10. METFORMIN [Concomitant]
     Active Substance: METFORMIN HYDROCHLORIDE

REACTIONS (4)
  - Therapy cessation [None]
  - Arrhythmia [None]
  - Pupillary disorder [None]
  - Visual acuity reduced [None]

NARRATIVE: CASE EVENT DATE: 20120225
